FAERS Safety Report 13894862 (Version 1)
Quarter: 2017Q3

REPORT INFORMATION
  Report Type: Spontaneous
  Country: US (occurrence: None)
  Receive Date: 20170817
  Receipt Date: 20170817
  Transmission Date: 20171127
  Serious: Yes (Hospitalization)
  Sender: FDA-Public Use
  Company Number: None

PATIENT
  Sex: Male

DRUGS (6)
  1. PROSTATE VITAMINS [Concomitant]
  2. SPANISH SAFFRON [Concomitant]
  3. HIGH CHOLESTEROL MEDICATION [Concomitant]
     Active Substance: UNSPECIFIED INGREDIENT
  4. VITAMIN D [Concomitant]
     Active Substance: CHOLECALCIFEROL
  5. DEPAKOTE [Concomitant]
     Active Substance: DIVALPROEX SODIUM
  6. ABILIFY [Suspect]
     Active Substance: ARIPIPRAZOLE
     Indication: BIPOLAR DISORDER
     Dosage: 2 PILLULES, 1 DAY/NIGHT, MOUITH
     Route: 048

REACTIONS (9)
  - Chest pain [None]
  - Confusional state [None]
  - Visual impairment [None]
  - Musculoskeletal stiffness [None]
  - Hyperhidrosis [None]
  - Throat tightness [None]
  - Lip swelling [None]
  - Dysphagia [None]
  - Movement disorder [None]

NARRATIVE: CASE EVENT DATE: 2005
